FAERS Safety Report 11229409 (Version 2)
Quarter: 2015Q3

REPORT INFORMATION
  Report Type: Spontaneous
  Country: FR (occurrence: FR)
  Receive Date: 20150630
  Receipt Date: 20150710
  Transmission Date: 20151125
  Serious: Yes (Other)
  Sender: FDA-Public Use
  Company Number: PHHY2015FR077546

PATIENT
  Age: 52 Year
  Sex: Male

DRUGS (1)
  1. ULTIBRO BREEZHALER [Suspect]
     Active Substance: GLYCOPYRRONIUM\INDACATEROL
     Indication: CHRONIC OBSTRUCTIVE PULMONARY DISEASE
     Dosage: 1 DF, QD
     Route: 055
     Dates: start: 20150523, end: 201505

REACTIONS (6)
  - Ocular hyperaemia [Recovered/Resolved]
  - Glaucoma [Unknown]
  - Conjunctival hyperaemia [Unknown]
  - Intraocular pressure increased [Unknown]
  - Visual acuity reduced [Recovered/Resolved]
  - Ocular discomfort [Unknown]

NARRATIVE: CASE EVENT DATE: 201505
